FAERS Safety Report 14757438 (Version 1)
Quarter: 2018Q2

REPORT INFORMATION
  Report Type: Spontaneous
  Country: US (occurrence: US)
  Receive Date: 20180409
  Receipt Date: 20180409
  Transmission Date: 20180711
  Serious: Yes (Other)
  Sender: FDA-Public Use
  Company Number: None

PATIENT
  Age: 59 Year
  Sex: Female
  Weight: 85.5 kg

DRUGS (9)
  1. EFFEXOR [Concomitant]
     Active Substance: VENLAFAXINE HYDROCHLORIDE
  2. PROBIOTIC [Concomitant]
     Active Substance: PROBIOTICS NOS
  3. JARDIANCE [Suspect]
     Active Substance: EMPAGLIFLOZIN
  4. D-3 [Concomitant]
     Active Substance: CHOLECALCIFEROL
  5. LETHOLEVOXENE [Concomitant]
  6. GLIMPRIDE [Concomitant]
  7. PLANT ENZYMES [Concomitant]
  8. MULTIVITAMINE [Concomitant]
  9. MAGNESIUM [Concomitant]
     Active Substance: MAGNESIUM

REACTIONS (1)
  - Fungal infection [None]

NARRATIVE: CASE EVENT DATE: 20171215
